FAERS Safety Report 15388973 (Version 2)
Quarter: 2018Q3

REPORT INFORMATION
  Report Type: Report from Study
  Country: US (occurrence: US)
  Receive Date: 20180917
  Receipt Date: 20180918
  Transmission Date: 20181010
  Serious: Yes (Death, Other)
  Sender: FDA-Public Use
  Company Number: US-AUROBINDO-AUR-APL-2018-045764

PATIENT
  Age: 41 Year
  Sex: Female

DRUGS (1)
  1. ACETAMINOPHEN. [Suspect]
     Active Substance: ACETAMINOPHEN
     Indication: PRODUCT USED FOR UNKNOWN INDICATION
     Route: 065

REACTIONS (10)
  - Depressed level of consciousness [Fatal]
  - Rhabdomyolysis [Fatal]
  - Coagulopathy [Fatal]
  - Metabolic acidosis [Fatal]
  - Respiratory depression [Fatal]
  - Hypotension [Fatal]
  - Coma [Fatal]
  - Anion gap [Fatal]
  - Hepatotoxicity [Fatal]
  - Leukocytosis [Fatal]
